FAERS Safety Report 8851495 (Version 1)
Quarter: 2012Q4

REPORT INFORMATION
  Report Type: 
  Country: US (occurrence: US)
  Receive Date: 20121022
  Receipt Date: 20121022
  Transmission Date: 20130627
  Serious: No
  Sender: FDA-Public Use
  Company Number: US-BIOGENIDEC-2012BI044210

PATIENT
  Sex: Female

DRUGS (1)
  1. TYSABRI [Suspect]
     Indication: MULTIPLE SCLEROSIS
     Route: 042
     Dates: start: 20120119

REACTIONS (6)
  - Weight increased [Recovered/Resolved]
  - Nervous system disorder [Recovered/Resolved]
  - Depression [Recovered/Resolved]
  - Muscle twitching [Recovered/Resolved]
  - Laboratory test abnormal [Recovered/Resolved]
  - Cystitis [Recovered/Resolved]
